FAERS Safety Report 8602094-6 (Version None)
Quarter: 2012Q3

REPORT INFORMATION
  Report Type: 
  Country: None (occurrence: None)
  Receive Date: 20120817
  Receipt Date: 20120813
  Transmission Date: 20120928
  Serious: Yes (Death)
  Sender: FDA-Public Use
  Company Number: FR-JNJFOC-20120805492

PATIENT
  Age: 83 Year
  Sex: Male

DRUGS (5)
  1. LOVENOX [Suspect]
     Indication: PRODUCT USED FOR UNKNOWN INDICATION
     Dosage: ANTI-XA / 0.4ML
     Route: 058
     Dates: start: 20120604, end: 20120614
  2. LERCANIDIPINE [Concomitant]
     Indication: HYPERTENSION
  3. SOTALOL HCL [Concomitant]
  4. LEPTICUR [Concomitant]
  5. RISPERDAL [Suspect]
     Indication: DEMENTIA
     Route: 048

REACTIONS (1)
  - PULMONARY EMBOLISM [None]
